FAERS Safety Report 21156401 (Version 1)
Quarter: 2022Q3

REPORT INFORMATION
  Report Type: Spontaneous
  Country: US (occurrence: US)
  Receive Date: 20220801
  Receipt Date: 20220801
  Transmission Date: 20221027
  Serious: No
  Sender: FDA-Public Use
  Company Number: US-BAYER-2022A103335

PATIENT
  Age: 65 Year
  Sex: Female

DRUGS (1)
  1. MIRALAX [Suspect]
     Active Substance: POLYETHYLENE GLYCOL 3350
     Indication: Faeces soft
     Dosage: UNK UNK, BID
     Route: 048
     Dates: start: 202207

REACTIONS (3)
  - Off label use [Unknown]
  - Product use in unapproved indication [None]
  - Product closure issue [None]
